FAERS Safety Report 16111423 (Version 9)
Quarter: 2019Q3

REPORT INFORMATION
  Report Type: Report from Study
  Country: None (occurrence: FR)
  Receive Date: 20190325
  Receipt Date: 20190702
  Transmission Date: 20191004
  Serious: Yes (Hospitalization, Other)
  Sender: FDA-Public Use
  Company Number: FR-ABBVIE-19S-056-2611638-00

PATIENT
  Age: 76 Year
  Sex: Male

DRUGS (3)
  1. DUODOPA [Suspect]
     Active Substance: CARBIDOPA\LEVODOPA
     Indication: PARKINSON^S DISEASE
     Dosage: MD : 3 ML ED : UNK , FLOW RATE DURING THE DAY: 0.5 ML/H, DAY RHYTHM : 7 AM TO 9 PM
     Route: 050
     Dates: start: 20160923, end: 201903
  2. MODOPAR [Concomitant]
     Active Substance: BENSERAZIDE HYDROCHLORIDE\LEVODOPA
     Indication: PRODUCT USED FOR UNKNOWN INDICATION
     Dosage: MODOPAR IS ASLO ADMINISTERED BY NASOGASTRIC TUBE
  3. DUODOPA [Suspect]
     Active Substance: CARBIDOPA\LEVODOPA
     Route: 050
     Dates: start: 20190531

REACTIONS (19)
  - Haemoptysis [Unknown]
  - Urinary retention [Not Recovered/Not Resolved]
  - Device issue [Unknown]
  - Incorrect route of product administration [Recovered/Resolved]
  - Stoma site inflammation [Not Recovered/Not Resolved]
  - Inflammation [Not Recovered/Not Resolved]
  - Pain [Not Recovered/Not Resolved]
  - Portal vein thrombosis [Unknown]
  - Infection [Not Recovered/Not Resolved]
  - Dysphagia [Unknown]
  - Hyperthermia [Unknown]
  - Haematuria [Unknown]
  - Thrombosis [Unknown]
  - Urinary tract infection [Not Recovered/Not Resolved]
  - Abdominal pain [Not Recovered/Not Resolved]
  - Urinary retention [Unknown]
  - Device occlusion [Unknown]
  - Cognitive disorder [Not Recovered/Not Resolved]
  - Agitation [Unknown]

NARRATIVE: CASE EVENT DATE: 20181227
